FAERS Safety Report 8791325 (Version 2)
Quarter: 2014Q2

REPORT INFORMATION
  Report Type: Spontaneous
  Country: KR (occurrence: None)
  Receive Date: 20120912
  Receipt Date: 20140428
  Transmission Date: 20141212
  Serious: Yes (Hospitalization)
  Sender: FDA-Public Use
  Company Number: KR-JNJFOC-20120900445

PATIENT
  Age: 50 Year
  Sex: Female
  Weight: 47 kg

DRUGS (9)
  1. DECITABINE [Suspect]
     Indication: MYELODYSPLASTIC SYNDROME
     Dosage: 1 DAY
     Route: 042
     Dates: start: 20111017, end: 20111021
  2. FLUCONAZOLE [Concomitant]
  3. ACYCLOVIR [Concomitant]
  4. SEPTRIN (BACTRIM) TABLET/00086101/ [Concomitant]
  5. CRAVIT (LEVOFLOXACIN) TABLET [Concomitant]
  6. ACYCLOVIR [Concomitant]
  7. MOXICLE (AMOXI-CLAVULANICO) [Concomitant]
  8. CEFTRIAXONE (CEFTRIAXONE) UNSPECIFIED [Concomitant]
  9. FLUNAZOLE (FLUCONAZOLE) TABLET [Concomitant]

REACTIONS (7)
  - Febrile neutropenia [None]
  - Enteritis [None]
  - Gastric ulcer [None]
  - Haemorrhoids [None]
  - Mouth ulceration [None]
  - Tonsillitis [None]
  - Abscess [None]
